FAERS Safety Report 6100817-1 (Version None)
Quarter: 2009Q1

REPORT INFORMATION
  Report Type: 
  Country: None (occurrence: None)
  Receive Date: 20090303
  Receipt Date: 20090219
  Transmission Date: 20090719
  Serious: Yes (Death)
  Sender: FDA-Public Use
  Company Number: US-JNJCH-2009005095

PATIENT
  Age: 64 Year
  Sex: Male

DRUGS (2)
  1. NICOTINE [Suspect]
     Indication: SMOKING CESSATION THERAPY
     Dosage: TEXT:21 MG/DAY 8 WKS,14 MG/DAY 1 WK, 7MG 1 WK
     Route: 062
  2. RIMONABANT [Suspect]
     Indication: WEIGHT INCREASED
     Dosage: TEXT:20 MG DAILY
     Route: 065

REACTIONS (3)
  - ACUTE RESPIRATORY DISTRESS SYNDROME [None]
  - INTESTINAL OBSTRUCTION [None]
  - POST PROCEDURAL INFECTION [None]
